FAERS Safety Report 17053374 (Version 1)
Quarter: 2019Q4

REPORT INFORMATION
  Report Type: Spontaneous
  Country: US (occurrence: US)
  Receive Date: 20191120
  Receipt Date: 20191120
  Transmission Date: 20200122
  Serious: No
  Sender: FDA-Public Use
  Company Number: US-BRISTOL-MYERS SQUIBB COMPANY-BMS-2019-111782

PATIENT
  Sex: Female

DRUGS (2)
  1. OPDIVO [Suspect]
     Active Substance: NIVOLUMAB
     Indication: PRODUCT USED FOR UNKNOWN INDICATION
     Dosage: UNK, QMO
     Route: 042
  2. OPDIVO [Suspect]
     Active Substance: NIVOLUMAB
     Indication: MALIGNANT MELANOMA STAGE III
     Dosage: UNK, Q2WK
     Route: 042
     Dates: start: 201904

REACTIONS (8)
  - Fatigue [Unknown]
  - Insomnia [Unknown]
  - Skin tightness [Unknown]
  - Myalgia [Unknown]
  - Rash [Unknown]
  - Anxiety [Unknown]
  - Pain [Unknown]
  - Fear [Unknown]
